FAERS Safety Report 4607685-5 (Version None)
Quarter: 2005Q1

REPORT INFORMATION
  Report Type: 
  Country: None (occurrence: None)
  Receive Date: 20050309
  Receipt Date: 20050221
  Transmission Date: 20050727
  Serious: Yes (Death, Other)
  Sender: FDA-Public Use
  Company Number: DE_050215300

PATIENT
  Age: 27 Year
  Sex: Male
  Weight: 69 kg

DRUGS (8)
  1. ZYPREXA [Suspect]
     Indication: BIPOLAR DISORDER
     Dosage: 5 MG DAY
     Dates: start: 20001205, end: 20010129
  2. METOPROLOL SUCCINATE [Concomitant]
  3. LASIX [Concomitant]
  4. DEPAKENE [Concomitant]
  5. CITALOPRAM HYDROBROMIDE [Concomitant]
  6. BROMUC (ACETYLCYSTEINE M/G) [Concomitant]
  7. ENOXAPARIN SODIUM [Concomitant]
  8. MUCOSOLVAN (AMBROXOL HYDROCHLORIDE) [Concomitant]

REACTIONS (7)
  - CORONARY ARTERY DISEASE [None]
  - DYSTONIA [None]
  - GENERAL PHYSICAL HEALTH DETERIORATION [None]
  - LUNG DISORDER [None]
  - PLEUROTHOTONUS [None]
  - PNEUMONIA [None]
  - PULMONARY EMBOLISM [None]
